FAERS Safety Report 5537658-X (Version None)
Quarter: 2007Q4

REPORT INFORMATION
  Report Type: 
  Country: None (occurrence: None)
  Receive Date: 20071207
  Receipt Date: 20071204
  Transmission Date: 20080405
  Serious: Yes (Other)
  Sender: FDA-Public Use
  Company Number: IL-JNJFOC-20071201195

PATIENT
  Sex: Male

DRUGS (2)
  1. RISPERDAL CONSTA [Suspect]
     Indication: DRUG USE FOR UNKNOWN INDICATION
     Route: 030
  2. CIPRALEX [Concomitant]

REACTIONS (4)
  - ANOREXIA [None]
  - DEPRESSION [None]
  - INSOMNIA [None]
  - MORBID THOUGHTS [None]
